FAERS Safety Report 8870575 (Version 1)
Quarter: 2012Q4

REPORT INFORMATION
  Report Type: Spontaneous
  Country: US (occurrence: None)
  Receive Date: 20121024
  Receipt Date: 20121024
  Transmission Date: 20130627
  Serious: Yes (Other)
  Sender: FDA-Public Use
  Company Number: 2011AP002551

PATIENT
  Age: 80 Year
  Sex: Female

DRUGS (1)
  1. ALLOPURINOL TABLETS, USP [Suspect]
     Indication: GOUT

REACTIONS (3)
  - Renal failure acute [None]
  - Skin reaction [None]
  - Drug reaction with eosinophilia and systemic symptoms [None]
